FAERS Safety Report 7901715-0 (Version None)
Quarter: 2011Q4

REPORT INFORMATION
  Report Type: 
  Country: None (occurrence: None)
  Receive Date: 20111108
  Receipt Date: 20111031
  Transmission Date: 20120403
  Serious: Yes (Hospitalization, Disabling, Other)
  Sender: FDA-Public Use
  Company Number: US-SANOFI-AVENTIS-2011SA071741

PATIENT
  Age: 77 Year
  Sex: Male

DRUGS (3)
  1. ASPIRIN [Concomitant]
     Dates: start: 20111001
  2. PLAVIX [Suspect]
     Route: 048
     Dates: end: 20111001
  3. COUMADIN [Concomitant]
     Dates: start: 20091101, end: 20111001

REACTIONS (8)
  - DEMENTIA [None]
  - INCONTINENCE [None]
  - HAEMORRHAGE [None]
  - AORTIC VALVE REPLACEMENT [None]
  - DEMENTIA ALZHEIMER'S TYPE [None]
  - URINARY TRACT INFECTION [None]
  - ACTIVITIES OF DAILY LIVING IMPAIRED [None]
  - VASCULAR GRAFT [None]
